FAERS Safety Report 8890795 (Version 1)
Quarter: 2012Q4

REPORT INFORMATION
  Report Type: 
  Country: DE (occurrence: DE)
  Receive Date: 20121107
  Receipt Date: 20121107
  Transmission Date: 20130627
  Serious: Yes (Life-Threatening, Hospitalization)
  Sender: FDA-Public Use
  Company Number: DE-ASTELLAS-2012EU009684

PATIENT
  Age: 47 Year
  Sex: Female

DRUGS (3)
  1. TACROLIMUS SYSTEMIC [Suspect]
     Indication: LIVER TRANSPLANT
     Dosage: UNK
     Route: 065
  2. MYCOPHENOLATE MOFETIL [Concomitant]
     Indication: LIVER TRANSPLANT
     Dosage: UNK
     Route: 065
  3. PREDNISONE [Concomitant]
     Dosage: UNK
     Route: 065

REACTIONS (2)
  - Parkinsonism [Recovered/Resolved]
  - Tremor [Not Recovered/Not Resolved]
